FAERS Safety Report 8263143-0 (Version None)
Quarter: 2012Q1

REPORT INFORMATION
  Report Type: 
  Country: None (occurrence: None)
  Receive Date: 20120327
  Receipt Date: 20110418
  Transmission Date: 20120608
  Serious: Yes (Other)
  Sender: FDA-Public Use
  Company Number: PHHY2011US33513

PATIENT
  Age: 69 Year
  Sex: Male
  Weight: 86.6 kg

DRUGS (8)
  1. KLONOPIN [Concomitant]
  2. AMITRIPTYLINE HCL [Concomitant]
  3. ASPIRIN [Concomitant]
  4. ATENOLOL [Concomitant]
  5. MECLIZINE [Concomitant]
  6. GLEEVEC [Suspect]
     Dosage: 400 MG, QD, ORAL
     Route: 048
  7. LIPITOR [Concomitant]
  8. ATIVAN [Concomitant]

REACTIONS (4)
  - ORBITAL OEDEMA [None]
  - OEDEMA PERIPHERAL [None]
  - MENIERE'S DISEASE [None]
  - RETINAL HAEMORRHAGE [None]
